FAERS Safety Report 19465797 (Version 2)
Quarter: 2021Q2

REPORT INFORMATION
  Report Type: Spontaneous
  Country: US (occurrence: US)
  Receive Date: 20210625
  Receipt Date: 20210625
  Transmission Date: 20210717
  Serious: Yes (Other)
  Sender: FDA-Public Use
  Company Number: US-KVK-TECH, INC-20210600076

PATIENT
  Age: 70 Year
  Sex: Female

DRUGS (1)
  1. PHENTERMINE HYDROCHLORIDE UNSPECIFIED [Suspect]
     Active Substance: PHENTERMINE HYDROCHLORIDE
     Indication: WEIGHT DECREASED
     Dosage: UNK

REACTIONS (2)
  - Ventricular fibrillation [Unknown]
  - Arteriospasm coronary [Unknown]
